FAERS Safety Report 11264180 (Version 1)
Quarter: 2015Q3

REPORT INFORMATION
  Report Type: Spontaneous
  Country: US (occurrence: US)
  Receive Date: 20150713
  Receipt Date: 20150713
  Transmission Date: 20151125
  Serious: No
  Sender: FDA-Public Use
  Company Number: US-JNJFOC-20150612492

PATIENT
  Age: 45 Year
  Sex: Female

DRUGS (1)
  1. ABCIXIMAB [Suspect]
     Active Substance: ABCIXIMAB
     Indication: THROMBOSIS PROPHYLAXIS
     Route: 013

REACTIONS (1)
  - Incorrect route of drug administration [Unknown]
